FAERS Safety Report 7908570-3 (Version None)
Quarter: 2011Q4

REPORT INFORMATION
  Report Type: 
  Country: None (occurrence: None)
  Receive Date: 20111111
  Receipt Date: 20111108
  Transmission Date: 20120403
  Serious: Yes (Other)
  Sender: FDA-Public Use
  Company Number: US-PFIZER INC-2011245476

PATIENT
  Sex: Male
  Weight: 81.633 kg

DRUGS (4)
  1. DILANTIN [Suspect]
     Dosage: UNK
  2. DILANTIN [Suspect]
     Indication: EPILEPSY
     Dosage: A 100MG AND A 30MG IN THE MORNING, A 100MG AND A 30MG IN THE MID AFTERNOON AND A 100MG AND TWO 30MG
     Route: 048
     Dates: start: 19960401
  3. MULTI-VITAMINS [Concomitant]
     Dosage: UNK
  4. CARBATROL [Suspect]
     Indication: EPILEPSY
     Dosage: UNK

REACTIONS (4)
  - INFLUENZA LIKE ILLNESS [None]
  - ANTICONVULSANT DRUG LEVEL ABNORMAL [None]
  - CONVULSION [None]
  - STEVENS-JOHNSON SYNDROME [None]
